FAERS Safety Report 25213521 (Version 1)
Quarter: 2025Q2

REPORT INFORMATION
  Report Type: Spontaneous
  Country: US (occurrence: None)
  Receive Date: 20250418
  Receipt Date: 20250418
  Transmission Date: 20250717
  Serious: No
  Sender: AXSOME THERAPEUTICS, INC.
  Company Number: US-Axsome Therapeutics, Inc.-AXS202503-000496

PATIENT

DRUGS (1)
  1. SUNOSI [Suspect]
     Active Substance: SOLRIAMFETOL
     Indication: Product used for unknown indication
     Route: 065

REACTIONS (9)
  - Ocular discomfort [Recovered/Resolved]
  - Feeling abnormal [Recovered/Resolved]
  - Illness [Recovered/Resolved]
  - Hypersomnia [Unknown]
  - Fatigue [Recovered/Resolved]
  - Rash [Recovered/Resolved]
  - Insomnia [Recovered/Resolved]
  - Anxiety [Recovered/Resolved]
  - Therapeutic product effect decreased [Recovered/Resolved]
